FAERS Safety Report 21956112 (Version 7)
Quarter: 2023Q4

REPORT INFORMATION
  Report Type: Spontaneous
  Country: JP (occurrence: None)
  Receive Date: 20230206
  Receipt Date: 20231114
  Transmission Date: 20240110
  Serious: Yes (Death, Life-Threatening, Hospitalization, Congenital Anomaly, Other)
  Sender: FDA-Public Use
  Company Number: 2023A029467

PATIENT
  Age: 78 Year
  Sex: Male

DRUGS (4)
  1. DAPAGLIFLOZIN [Suspect]
     Active Substance: DAPAGLIFLOZIN
     Indication: Cardiac failure chronic
     Route: 048
     Dates: start: 202208, end: 20230113
  2. DIGOXIN [Suspect]
     Active Substance: DIGOXIN
     Indication: Cardiac failure chronic
     Route: 048
     Dates: start: 202212, end: 20230113
  3. AZOSEMIDE [Suspect]
     Active Substance: AZOSEMIDE
     Indication: Cardiac failure chronic
     Route: 048
     Dates: end: 20230113
  4. XARELTO [Concomitant]
     Active Substance: RIVAROXABAN
     Indication: Cardiac failure chronic
     Route: 048
     Dates: end: 20230113

REACTIONS (10)
  - Acute kidney injury [Not Recovered/Not Resolved]
  - Malaise [Not Recovered/Not Resolved]
  - Euglycaemic diabetic ketoacidosis [Not Recovered/Not Resolved]
  - Toxicity to various agents [Fatal]
  - Decreased appetite [Fatal]
  - Cachexia [Fatal]
  - Dehydration [Fatal]
  - Nutritional condition abnormal [Fatal]
  - Bronchiolitis [Unknown]
  - Atrial fibrillation [Unknown]

NARRATIVE: CASE EVENT DATE: 20221201
